FAERS Safety Report 7410376-9 (Version None)
Quarter: 2011Q2

REPORT INFORMATION
  Report Type: 
  Country: None (occurrence: None)
  Receive Date: 20110412
  Receipt Date: 20110404
  Transmission Date: 20111010
  Serious: Yes (Other)
  Sender: FDA-Public Use
  Company Number: US-WATSON-2011-04761

PATIENT
  Age: 68 Year
  Sex: Male

DRUGS (2)
  1. FENTANYL-75 [Suspect]
     Indication: BACK PAIN
     Dosage: ONE PATCH EVERY THREE DAYS
     Route: 062
     Dates: start: 20110402, end: 20110403
  2. NORCO [Concomitant]
     Indication: BACK PAIN
     Dosage: UNK
     Route: 048

REACTIONS (1)
  - SUICIDAL IDEATION [None]
